FAERS Safety Report 16430458 (Version 1)
Quarter: 2019Q2

REPORT INFORMATION
  Report Type: Spontaneous
  Country: US (occurrence: US)
  Receive Date: 20190614
  Receipt Date: 20190614
  Transmission Date: 20190711
  Serious: Yes (Hospitalization, Other)
  Sender: FDA-Public Use
  Company Number: US-AMAG PHARMACEUTICALS, INC.-AMAG201903096

PATIENT
  Sex: Female

DRUGS (1)
  1. HYDROXYPROGESTERONE CAPROATE. [Suspect]
     Active Substance: HYDROXYPROGESTERONE CAPROATE
     Indication: PRODUCT USED FOR UNKNOWN INDICATION
     Route: 030

REACTIONS (3)
  - Placenta praevia [Unknown]
  - Product dose omission [Unknown]
  - Premature separation of placenta [Unknown]
